FAERS Safety Report 7650420-7 (Version None)
Quarter: 2011Q3

REPORT INFORMATION
  Report Type: 
  Country: None (occurrence: None)
  Receive Date: 20110802
  Receipt Date: 20100707
  Transmission Date: 20111222
  Serious: Yes (Hospitalization)
  Sender: FDA-Public Use
  Company Number: US-GLAXOSMITHKLINE-A0869868A

PATIENT
  Age: 44 Year
  Sex: Male
  Weight: 96.8 kg

DRUGS (7)
  1. CLONIDINE [Concomitant]
  2. MONOPRIL [Concomitant]
  3. XENICAL [Concomitant]
  4. LOPRESSOR [Concomitant]
  5. AVANDIA [Suspect]
     Indication: DIABETES MELLITUS
     Dosage: 4MG TWICE PER DAY
     Route: 048
     Dates: start: 19990101, end: 20000608
  6. GLYBURIDE [Concomitant]
  7. GLUCOPHAGE [Concomitant]

REACTIONS (3)
  - PULMONARY OEDEMA [None]
  - CARDIAC ARREST [None]
  - CARDIAC FAILURE CONGESTIVE [None]
